FAERS Safety Report 20540185 (Version 1)
Quarter: 2022Q1

REPORT INFORMATION
  Report Type: Spontaneous
  Country: US (occurrence: US)
  Receive Date: 20220302
  Receipt Date: 20220302
  Transmission Date: 20220424
  Serious: Yes (Death)
  Sender: FDA-Public Use
  Company Number: US-PFIZER INC-202200294003

PATIENT
  Age: 15 Month
  Sex: Male

DRUGS (3)
  1. METHYLPREDNISOLONE ACETATE [Suspect]
     Active Substance: METHYLPREDNISOLONE ACETATE
     Indication: Multisystem inflammatory syndrome in children
     Dosage: UNK (HIGH DOSE)
  2. ANAKINRA [Suspect]
     Active Substance: ANAKINRA
     Indication: Multisystem inflammatory syndrome in children
     Dosage: UNK (HIGH DOSE)
  3. HUMAN IMMUNOGLOBULIN G [Suspect]
     Active Substance: HUMAN IMMUNOGLOBULIN G
     Indication: Multisystem inflammatory syndrome in children
     Dosage: UNK (HIGH DOSE)
     Route: 042

REACTIONS (1)
  - Drug ineffective [Fatal]
